FAERS Safety Report 10500947 (Version 2)
Quarter: 2019Q1

REPORT INFORMATION
  Report Type: Spontaneous
  Country: DE (occurrence: DE)
  Receive Date: 20141007
  Receipt Date: 20190208
  Transmission Date: 20190417
  Serious: Yes (Life-Threatening, Hospitalization, Other)
  Sender: FDA-Public Use
  Company Number: DE-ACCORD-026246

PATIENT
  Age: 21 Year
  Sex: Female

DRUGS (7)
  1. GABAPENTIN. [Interacting]
     Active Substance: GABAPENTIN
     Dosage: 40 TABLETS OF 400 MG GABAPENTIN,16 G
     Route: 048
  2. TORASEMIDE [Interacting]
     Active Substance: TORSEMIDE
     Dosage: 50 TABLETS OF 10 MG TORSEMIDE,500 MG
     Route: 048
  3. AMITRIPTYLINE [Suspect]
     Active Substance: AMITRIPTYLINE
     Dosage: 60 TABLETS OF 100 MG AMITRIPTYLINE,6 G
     Route: 048
  4. CARVEDILOL. [Interacting]
     Active Substance: CARVEDILOL
     Dosage: 70 TABLETS OF 25-MG CARVEDILOL,1750 MG
     Route: 048
  5. AMLODIPINE [Interacting]
     Active Substance: AMLODIPINE BESYLATE
     Dosage: 60 TABLETS OF 5 MG AMLODIPINE (300 MG)
     Route: 048
  6. KETOPROFEN/KETOPROFEN ARGINATE/KETOPROFEN LYSINE/KETOPROFEN SODIUM [Interacting]
     Active Substance: KETOPROFEN
     Dosage: 30 TABLETS OF 50-MG KETOPROFEN,1.5 G
     Route: 048
  7. NICOTINIC ACID [Interacting]
     Active Substance: NIACIN
     Dosage: 56 TABLETS OF 500 MG, 28 G
     Route: 048

REACTIONS (6)
  - Toxicity to various agents [Unknown]
  - Suicide attempt [Unknown]
  - Intentional overdose [Unknown]
  - Cardiac arrest [Recovered/Resolved]
  - Compartment syndrome [Unknown]
  - Drug interaction [Unknown]
